FAERS Safety Report 11511043 (Version 2)
Quarter: 2015Q3

REPORT INFORMATION
  Report Type: Spontaneous
  Country: JP (occurrence: JP)
  Receive Date: 20150915
  Receipt Date: 20150915
  Transmission Date: 20151125
  Serious: Yes (Other)
  Sender: FDA-Public Use
  Company Number: JP-BAYER-2015-415769

PATIENT

DRUGS (3)
  1. UNFRACTIONATED HEPARIN [Concomitant]
     Active Substance: HEPARIN SODIUM
     Route: 064
  2. ACETYLSALICYLIC ACID({=100 MG) [Suspect]
     Active Substance: ASPIRIN
     Route: 064
  3. DANAPAROID SODIUM [Concomitant]
     Active Substance: DANAPAROID SODIUM
     Route: 064

REACTIONS (2)
  - Foetal exposure timing unspecified [Recovered/Resolved]
  - Low birth weight baby [None]
